FAERS Safety Report 5517976-1 (Version None)
Quarter: 2007Q4

REPORT INFORMATION
  Report Type: 
  Country: None (occurrence: None)
  Receive Date: 20071114
  Receipt Date: 20071114
  Transmission Date: 20080405
  Serious: Yes (Other)
  Sender: FDA-Public Use
  Company Number: None

PATIENT
  Age: 37 Year
  Sex: Female
  Weight: 70.3075 kg

DRUGS (1)
  1. LEVAQUIN [Suspect]
     Indication: POSTOPERATIVE FEVER
     Dosage: 500 MG 1/DAY PO
     Route: 048
     Dates: start: 20071104, end: 20071107

REACTIONS (9)
  - ANOREXIA [None]
  - ANXIETY [None]
  - ARRHYTHMIA [None]
  - DIARRHOEA [None]
  - HEADACHE [None]
  - HEART RATE INCREASED [None]
  - INSOMNIA [None]
  - NAUSEA [None]
  - POLLAKIURIA [None]
